FAERS Safety Report 4390257-8 (Version None)
Quarter: 2004Q2

REPORT INFORMATION
  Report Type: 
  Country: None (occurrence: None)
  Receive Date: 20040630
  Receipt Date: 20040616
  Transmission Date: 20050107
  Serious: Yes (Death)
  Sender: FDA-Public Use
  Company Number: GB-JNJFOC-20040605198

PATIENT
  Age: 89 Year
  Sex: Male

DRUGS (1)
  1. REMINLY (GALANTAMINE) UNSPECIFIED [Suspect]
     Indication: DEMENTIA ALZHEIMER'S TYPE
     Dosage: 4 MG, ORAL
     Route: 048
     Dates: start: 20040326, end: 20040331

REACTIONS (3)
  - BLOOD PRESSURE SYSTOLIC INCREASED [None]
  - CEREBROVASCULAR ACCIDENT [None]
  - LOSS OF CONSCIOUSNESS [None]
